FAERS Safety Report 6565366-5 (Version None)
Quarter: 2010Q1

REPORT INFORMATION
  Report Type: 
  Country: None (occurrence: None)
  Receive Date: 20100201
  Receipt Date: 20100122
  Transmission Date: 20100710
  Serious: Yes (Other)
  Sender: FDA-Public Use
  Company Number: GXKR2010GB01084

PATIENT
  Sex: Female

DRUGS (1)
  1. VALPROIC ACID (NGX) [Suspect]
     Indication: EPILEPSY
     Route: 065

REACTIONS (2)
  - ABORTION INDUCED [None]
  - DRUG EXPOSURE DURING PREGNANCY [None]
